FAERS Safety Report 19479951 (Version 1)
Quarter: 2021Q3

REPORT INFORMATION
  Report Type: Other
  Country: US (occurrence: US)
  Receive Date: 20210701
  Receipt Date: 20210701
  Transmission Date: 20211014
  Serious: Yes (Life-Threatening, Hospitalization, Other)
  Sender: FDA-Public Use
  Company Number: US-INNOGENIX, LLC-2113359

PATIENT
  Age: 27 Year
  Sex: Male

DRUGS (9)
  1. MIDAZOLAM. [Suspect]
     Active Substance: MIDAZOLAM
     Route: 040
  2. PROPOFOL. [Suspect]
     Active Substance: PROPOFOL
     Route: 040
  3. SEVOFLURANE. [Suspect]
     Active Substance: SEVOFLURANE
     Route: 065
  4. FENTANYL. [Interacting]
     Active Substance: FENTANYL
     Route: 040
  5. SUCCINYLCHOLINE CHLORIDE. [Interacting]
     Active Substance: SUCCINYLCHOLINE CHLORIDE
     Route: 042
  6. PROPRANOLOL HYDROCHLORIDE. [Suspect]
     Active Substance: PROPRANOLOL HYDROCHLORIDE
     Indication: PRODUCT USED FOR UNKNOWN INDICATION
     Route: 065
  7. FLUVOXAMINE [Suspect]
     Active Substance: FLUVOXAMINE
     Route: 065
  8. GUANFACINE. [Suspect]
     Active Substance: GUANFACINE
     Route: 065
  9. KETAMINE HYDROCHLORIDE. [Suspect]
     Active Substance: KETAMINE HYDROCHLORIDE
     Route: 030

REACTIONS (4)
  - Cardiac arrest [Recovered/Resolved]
  - Drug interaction [Recovered/Resolved]
  - Bradycardia [Recovered/Resolved]
  - Hypotension [Recovered/Resolved]
